FAERS Safety Report 10527154 (Version 2)
Quarter: 2014Q4

REPORT INFORMATION
  Report Type: Other
  Country: IT (occurrence: IT)
  Receive Date: 20141020
  Receipt Date: 20141020
  Transmission Date: 20150528
  Serious: Yes (Death, Hospitalization)
  Sender: FDA-Public Use
  Company Number: IT-AUROBINDO-AUR-APL-2014-05186

PATIENT
  Age: 65 Year
  Sex: Male

DRUGS (4)
  1. ALAPRIL [Concomitant]
     Indication: PRODUCT USED FOR UNKNOWN INDICATION
     Dosage: 20 MG,UNK
     Route: 065
  2. CARDIOASPIRIN [Concomitant]
     Active Substance: ASPIRIN
     Indication: PRODUCT USED FOR UNKNOWN INDICATION
     Dosage: 100 MG,UNK,
     Route: 065
  3. FLUCONAZOLE 150MG [Suspect]
     Active Substance: FLUCONAZOLE
     Indication: ONYCHOMYCOSIS
     Dosage: 150 MG,WEEKLY, UNK,
     Route: 048
     Dates: start: 20140216, end: 20140301
  4. OMEPRAZEN [Concomitant]
     Active Substance: OMEPRAZOLE
     Indication: PRODUCT USED FOR UNKNOWN INDICATION
     Dosage: 20 MG,UNK,
     Route: 048

REACTIONS (5)
  - Urticaria [Recovering/Resolving]
  - Pruritus [Recovering/Resolving]
  - Oral mucosa erosion [Recovering/Resolving]
  - Erythema [Recovering/Resolving]
  - Rash generalised [Recovering/Resolving]

NARRATIVE: CASE EVENT DATE: 20140316
